FAERS Safety Report 8559827-7 (Version None)
Quarter: 2012Q3

REPORT INFORMATION
  Report Type: 
  Country: None (occurrence: None)
  Receive Date: 20120802
  Receipt Date: 20120724
  Transmission Date: 20120928
  Serious: Yes (Other)
  Sender: FDA-Public Use
  Company Number: BR-PFIZER INC-2012179691

PATIENT
  Age: 46 Year
  Sex: Female
  Weight: 62 kg

DRUGS (3)
  1. LEVOTHYROXINE SODIUM [Concomitant]
     Dosage: UNK
  2. LYRICA [Suspect]
     Dosage: 2X/DAY, 12 IN 12 HOURS
     Route: 048
  3. LYRICA [Suspect]
     Dosage: UNK

REACTIONS (4)
  - THROAT IRRITATION [None]
  - GLOSSOPHARYNGEAL NEURALGIA [None]
  - COUGH [None]
  - SINUSITIS [None]
